FAERS Safety Report 21885732 (Version 2)
Quarter: 2023Q1

REPORT INFORMATION
  Report Type: Spontaneous
  Country: IT (occurrence: IT)
  Receive Date: 20230119
  Receipt Date: 20230201
  Transmission Date: 20230418
  Serious: Yes (Other)
  Sender: FDA-Public Use
  Company Number: IT-TEVA-2023-IT-2846757

PATIENT
  Age: 70 Year
  Sex: Male

DRUGS (4)
  1. AMLODIPINE [Suspect]
     Active Substance: AMLODIPINE BESYLATE
     Indication: Raynaud^s phenomenon
     Dosage: 5 MILLIGRAM DAILY;
     Route: 065
  2. AMLODIPINE [Suspect]
     Active Substance: AMLODIPINE BESYLATE
     Indication: Systemic scleroderma
  3. ILOPROST [Suspect]
     Active Substance: ILOPROST
     Indication: Systemic scleroderma
     Dosage: INFUSION. STARTING AT A RATE OF 0.5 NG/KG/MIN (6 H PER DAY, EVERY 4 WEEKS) AND INCREASED PROGRESS...
     Route: 050
     Dates: start: 2011
  4. ILOPROST [Suspect]
     Active Substance: ILOPROST
     Indication: Systemic scleroderma
     Dosage: 1.62 NG/KG/MIN
     Route: 050
     Dates: start: 2015

REACTIONS (3)
  - Raynaud^s phenomenon [Recovering/Resolving]
  - Paradoxical drug reaction [Recovering/Resolving]
  - Drug ineffective [Unknown]
